FAERS Safety Report 8349940-1 (Version None)
Quarter: 2012Q2

REPORT INFORMATION
  Report Type: 
  Country: None (occurrence: None)
  Receive Date: 20120510
  Receipt Date: 20120503
  Transmission Date: 20120825
  Serious: Yes (Other)
  Sender: FDA-Public Use
  Company Number: US-BAYER-2012-045177

PATIENT
  Age: 47 Year

DRUGS (2)
  1. NAPROXEN SODIUM [Suspect]
     Dosage: 2 DF, UNK
     Route: 048
     Dates: start: 20120201, end: 20120201
  2. NAPROXEN SODIUM [Suspect]
     Dosage: 2 DF, UNK
     Route: 048
     Dates: start: 20120503, end: 20120503

REACTIONS (4)
  - HYPERSENSITIVITY [None]
  - ABDOMINAL DISCOMFORT [None]
  - RASH ERYTHEMATOUS [None]
  - BODY TEMPERATURE INCREASED [None]
